FAERS Safety Report 19668609 (Version 2)
Quarter: 2021Q3

REPORT INFORMATION
  Report Type: Report from Study
  Country: US (occurrence: US)
  Receive Date: 20210806
  Receipt Date: 20210811
  Transmission Date: 20211014
  Serious: Yes (Life-Threatening, Hospitalization)
  Sender: FDA-Public Use
  Company Number: US-GLAXOSMITHKLINE-US2021GSK167108

PATIENT
  Age: 64 Year
  Sex: Male

DRUGS (4)
  1. DOSTARLIMAB [Suspect]
     Active Substance: DOSTARLIMAB
     Indication: NEUROENDOCRINE CARCINOMA
     Dosage: 500 MG, Q3W, C2D1
     Route: 042
  2. DOSTARLIMAB [Suspect]
     Active Substance: DOSTARLIMAB
     Indication: SMALL CELL LUNG CANCER
     Dosage: 500 MG, Q3W, C1D1
     Route: 042
  3. NIRAPARIB [Suspect]
     Active Substance: NIRAPARIB
     Indication: SMALL CELL LUNG CANCER
     Dosage: 300 MG, QD, C1D1
     Route: 048
  4. NIRAPARIB [Suspect]
     Active Substance: NIRAPARIB
     Indication: NEUROENDOCRINE CARCINOMA
     Dosage: 300 MG, QD, C2D1
     Route: 048

REACTIONS (2)
  - Platelet count decreased [Unknown]
  - Abdominal pain [Unknown]

NARRATIVE: CASE EVENT DATE: 20210715
